FAERS Safety Report 5983931-0 (Version None)
Quarter: 2008Q4

REPORT INFORMATION
  Report Type: 
  Country: None (occurrence: None)
  Receive Date: 20081208
  Receipt Date: 20081124
  Transmission Date: 20090506
  Serious: Yes (Other)
  Sender: FDA-Public Use
  Company Number: CN-ROCHE-598916

PATIENT
  Sex: Male
  Weight: 50 kg

DRUGS (1)
  1. XELODA [Suspect]
     Indication: COLORECTAL CANCER
     Dosage: TAKEN REGULARLY IN THE FIRST 2 COURSES, AND THEN IRREGULARLY DUE TO FINANCIAL PROBLEMS.
     Route: 048
     Dates: start: 20080325, end: 20081012

REACTIONS (3)
  - HAEMATURIA [None]
  - NAUSEA [None]
  - VOMITING [None]
